FAERS Safety Report 8448575-X (Version None)
Quarter: 2012Q2

REPORT INFORMATION
  Report Type: 
  Country: None (occurrence: None)
  Receive Date: 20120619
  Receipt Date: 20120601
  Transmission Date: 20120825
  Serious: Yes (Hospitalization)
  Sender: FDA-Public Use
  Company Number: FR-PFIZER INC-K201100726

PATIENT
  Sex: Male

DRUGS (14)
  1. GLUCOPHAGE [Suspect]
     Indication: INTENTIONAL OVERDOSE
     Dosage: 17000 MG, SINGLE
     Route: 048
     Dates: start: 20090701, end: 20090701
  2. GLUCOPHAGE [Suspect]
     Indication: TYPE 2 DIABETES MELLITUS
     Dosage: 17000 MG, SINGLE
  3. MIRTAZAPINE [Concomitant]
     Dosage: UNK
  4. ASPIRIN [Concomitant]
     Dosage: UNK
  5. FUROSEMIDE [Suspect]
     Indication: MYOCARDIAL ISCHAEMIA
     Dosage: 240 MG, SINGLE
     Route: 048
     Dates: start: 20090702, end: 20090702
  6. TENORMIN [Suspect]
     Indication: INTENTIONAL OVERDOSE
     Dosage: 400 MG, SINGLE
     Dates: start: 20090701, end: 20090701
  7. FUROSEMIDE [Suspect]
     Indication: INTENTIONAL OVERDOSE
  8. RAMIPRIL [Suspect]
     Dosage: 50 MG, SINGLE
     Route: 048
     Dates: start: 20090702, end: 20090702
  9. TRIMEPRAZINE TARTRATE [Concomitant]
     Dosage: UNK
  10. PRAVASTATIN [Concomitant]
     Dosage: UNK
  11. TENORMIN [Suspect]
     Indication: MYOCARDIAL ISCHAEMIA
     Dosage: 400 MG, SINGLE
     Route: 048
     Dates: start: 20090702, end: 20090702
  12. ATARAX [Suspect]
     Indication: DEPRESSION
     Dosage: UNK
     Route: 048
  13. BUSPAR [Suspect]
     Indication: DEPRESSION
     Dosage: UNK
     Route: 048
  14. LYRICA [Concomitant]
     Dosage: UNK

REACTIONS (4)
  - INTENTIONAL OVERDOSE [None]
  - SUICIDE ATTEMPT [None]
  - MULTIPLE DRUG OVERDOSE INTENTIONAL [None]
  - HYPOGLYCAEMIA [None]
